FAERS Safety Report 8665463 (Version 3)
Quarter: 2014Q1

REPORT INFORMATION
  Report Type: Report from Study
  Country: KR (occurrence: KR)
  Receive Date: 20120716
  Receipt Date: 20140303
  Transmission Date: 20141002
  Serious: Yes (Hospitalization)
  Sender: FDA-Public Use
  Company Number: KR-MPIJNJ-2011-06696

PATIENT
  Sex: 0

DRUGS (8)
  1. VELCADE [Suspect]
     Indication: PLASMA CELL MYELOMA
     Dosage: 1.3 MG/M2, CYCLIC
     Route: 042
     Dates: start: 20110908, end: 20111020
  2. VELCADE [Suspect]
     Dosage: 1.0 MG/M2, UNK
     Route: 042
     Dates: start: 20111031, end: 20120621
  3. MELPHALAN [Suspect]
     Indication: PLASMA CELL MYELOMA
     Dosage: 9 MG/M2, UNK
     Route: 042
     Dates: start: 20110918, end: 20110921
  4. MELPHALAN [Suspect]
     Dosage: 9 MG/M2, UNK
     Route: 042
     Dates: start: 20111031, end: 20111103
  5. MELPHALAN [Suspect]
     Dosage: 6.5 UNK, UNK
     Route: 065
     Dates: start: 20111220, end: 20120626
  6. PREDNISOLONE [Suspect]
     Indication: PLASMA CELL MYELOMA
     Dosage: 60 MG/M2, UNK
     Route: 042
     Dates: start: 20110918, end: 20110921
  7. PREDNISOLONE [Suspect]
     Dosage: 60 MG/M2, UNK
     Route: 042
     Dates: start: 20111031, end: 20111103
  8. PREDNISOLONE [Suspect]
     Dosage: 45 MG/M2, UNK
     Route: 065
     Dates: start: 20111220, end: 20120626

REACTIONS (10)
  - Pneumocystis jirovecii pneumonia [Recovered/Resolved]
  - Diarrhoea [Recovered/Resolved]
  - Leukopenia [Recovered/Resolved]
  - Rash [Recovered/Resolved]
  - Thrombocytopenia [Recovered/Resolved]
  - Asthenia [Recovered/Resolved]
  - Neuropathy peripheral [Recovered/Resolved]
  - Chills [Recovered/Resolved]
  - Pyrexia [Recovered/Resolved]
  - Myalgia [Recovered/Resolved]
